APPROVED DRUG PRODUCT: EMERPHED
Active Ingredient: EPHEDRINE SULFATE
Strength: 25MG/5ML (5MG/ML)
Dosage Form/Route: SOLUTION;INTRAVENOUS
Application: N213407 | Product #002
Applicant: NEXUS PHARMACEUTICALS LLC
Approved: Feb 28, 2023 | RLD: Yes | RS: Yes | Type: RX

PATENTS:
Patent 11571398 | Expires: May 16, 2040
Patent 11464752 | Expires: May 16, 2040